FAERS Safety Report 25948855 (Version 1)
Quarter: 2025Q4

REPORT INFORMATION
  Report Type: Report from Study
  Country: AR (occurrence: AR)
  Receive Date: 20251022
  Receipt Date: 20251022
  Transmission Date: 20260118
  Serious: Yes (Hospitalization)
  Sender: AMGEN
  Company Number: AR-AMGEN-ARGSL2025206881

PATIENT
  Age: 71 Year
  Sex: Male

DRUGS (1)
  1. VECTIBIX [Suspect]
     Active Substance: PANITUMUMAB
     Indication: Colorectal cancer
     Dosage: UNK, 15 DAYS
     Route: 065
     Dates: start: 20241107

REACTIONS (2)
  - Skin lesion [Recovering/Resolving]
  - Complication associated with device [Unknown]

NARRATIVE: CASE EVENT DATE: 20250701
